FAERS Safety Report 5144357-5 (Version None)
Quarter: 2006Q4

REPORT INFORMATION
  Report Type: 
  Country: None (occurrence: None)
  Receive Date: 20061030
  Receipt Date: 20061018
  Transmission Date: 20070319
  Serious: No
  Sender: FDA-Public Use
  Company Number: 231415

PATIENT
  Age: 15 Year
  Sex: Male

DRUGS (1)
  1. NUTROPIN AQ [Suspect]
     Indication: UNEVALUABLE EVENT
     Dosage: 3 MG, 7/WEEK, SUBCUTANEOUS
     Route: 058
     Dates: start: 20050817, end: 20060624

REACTIONS (4)
  - BLOOD IMMUNOGLOBULIN G INCREASED [None]
  - BLOOD IMMUNOGLOBULIN M DECREASED [None]
  - JOINT EFFUSION [None]
  - LYME DISEASE [None]
